FAERS Safety Report 9712905 (Version 2)
Quarter: 2013Q4

REPORT INFORMATION
  Report Type: Report from Study
  Country: US (occurrence: US)
  Receive Date: 20131126
  Receipt Date: 20131225
  Transmission Date: 20140711
  Serious: Yes (Hospitalization)
  Sender: FDA-Public Use
  Company Number: US-MERCK-1311USA008907

PATIENT
  Age: 46 Year
  Sex: Female
  Weight: 67.86 kg

DRUGS (21)
  1. VORINOSTAT [Suspect]
     Indication: MYELODYSPLASTIC SYNDROME
     Dosage: 100 MG, BID BEGINNING ON DAY -10 THROUGH 100
     Route: 048
     Dates: start: 20130923
  2. VORINOSTAT [Suspect]
     Dosage: 100 MG, BID BEGINNING ON DAY -10 THROUGH 100
     Route: 048
     Dates: start: 20131108
  3. METHOTREXATE [Suspect]
     Indication: MYELODYSPLASTIC SYNDROME
     Dosage: 5 MG/M2, ON DAYS 1, 3, 6, AND 11
     Route: 042
     Dates: start: 20131030
  4. METHOTREXATE [Suspect]
     Dosage: 5 MG/M2, ON DAYS 1, 3, 6, AND 11
     Route: 042
     Dates: start: 20130914
  5. TACROLIMUS [Suspect]
     Indication: MYELODYSPLASTIC SYNDROME
     Dosage: 0.045 MG/KG OR 0.03MG/KG, BID ,BEGINNING ON DAY -3
     Route: 048
     Dates: start: 20131101
  6. TACROLIMUS [Suspect]
     Dosage: 0.045 MG/KG OR 0.03MG/KG, BID ,BEGINNING ON DAY -3
     Route: 048
     Dates: start: 20130916
  7. ACYCLOVIR [Concomitant]
     Dosage: UNK
  8. CALCIUM CITRATE (+) CHOLECALCIFEROL [Concomitant]
     Dosage: UNK
  9. CYCLOSPORINE [Concomitant]
     Dosage: UNK
  10. FLUCONAZOLE [Concomitant]
     Dosage: UNK
  11. LORAZEPAM [Concomitant]
     Dosage: UNK
  12. MAGNESIUM OXIDE [Concomitant]
     Dosage: UNK
  13. MULTIVITAMIN [Concomitant]
     Dosage: UNK
  14. OMEPRAZOLE [Concomitant]
     Dosage: UNK
  15. ONDANSETRON HYDROCHLORIDE [Concomitant]
     Dosage: UNK
  16. OXYCODONE [Concomitant]
     Dosage: UNK
  17. TACROLIMUS [Concomitant]
     Dosage: UNK
  18. URSODIOL [Concomitant]
     Dosage: UNK
  19. CYANOCOBALAMIN [Concomitant]
     Dosage: UNK
  20. ERGOCALCIFEROL [Concomitant]
     Dosage: UNK
  21. ALUMINUM HYDROXIDE (+) DIPHENHYDRAMINE HYDROCHLORIDE (+) LIDOCAINE [Concomitant]
     Dosage: UNK

REACTIONS (1)
  - Non-cardiac chest pain [Recovered/Resolved]
